FAERS Safety Report 6139126-3 (Version None)
Quarter: 2009Q2

REPORT INFORMATION
  Report Type: 
  Country: None (occurrence: None)
  Receive Date: 20090401
  Receipt Date: 20090320
  Transmission Date: 20091009
  Serious: Yes (Death)
  Sender: FDA-Public Use
  Company Number: ES-PFIZER INC-2009186624

PATIENT

DRUGS (1)
  1. SOMATROPIN [Suspect]
     Dosage: 1 MG, 1X/DAY
     Route: 058
     Dates: start: 20060213

REACTIONS (1)
  - RHABDOMYOSARCOMA RECURRENT [None]
